FAERS Safety Report 11863390 (Version 4)
Quarter: 2016Q1

REPORT INFORMATION
  Report Type: Spontaneous
  Country: CN (occurrence: CN)
  Receive Date: 20151223
  Receipt Date: 20160211
  Transmission Date: 20160526
  Serious: Yes (Hospitalization, Other)
  Sender: FDA-Public Use
  Company Number: CN-ACTAVIS-2015-28146

PATIENT
  Age: 48 Year
  Sex: Male

DRUGS (16)
  1. MOSAPRIDE CITRATE [Suspect]
     Active Substance: MOSAPRIDE CITRATE
     Indication: PRODUCT USED FOR UNKNOWN INDICATION
     Dosage: UNK
     Route: 048
  2. FENTANYL. [Concomitant]
     Active Substance: FENTANYL
     Indication: BREAKTHROUGH PAIN
     Dosage: 100 ?G, UNKNOWN
     Route: 062
  3. GABAPENTIN. [Concomitant]
     Active Substance: GABAPENTIN
     Indication: BREAKTHROUGH PAIN
     Dosage: 0.3 G, TID
     Route: 065
  4. MORPHINE (UNKNOWN) [Suspect]
     Active Substance: MORPHINE
     Dosage: 30 MG, UNKNOWN
     Route: 048
  5. PREGABALIN. [Concomitant]
     Active Substance: PREGABALIN
     Indication: NEURALGIA
     Dosage: UNK
     Route: 065
  6. DULOXETINE. [Concomitant]
     Active Substance: DULOXETINE
     Indication: BREAKTHROUGH PAIN
     Dosage: 120 MG DAILY ONCE EACH NIGHT; DULOXETINE ENTERIC CAPSULE
     Route: 048
  7. MORPHINE (UNKNOWN) [Suspect]
     Active Substance: MORPHINE
     Dosage: 20 MG, Q4H
     Route: 033
  8. MORPHINE (UNKNOWN) [Suspect]
     Active Substance: MORPHINE
     Dosage: 10 MG, PRN EVERY 1-2 H
     Route: 033
  9. FENTANYL. [Concomitant]
     Active Substance: FENTANYL
     Dosage: 150 ?G, UNKNOWN
     Route: 062
  10. CARBAMAZEPINE (UNKNOWN) [Suspect]
     Active Substance: CARBAMAZEPINE
     Indication: BREAKTHROUGH PAIN
     Dosage: 0.2 G, BID
     Route: 048
  11. ACETAMINOPHEN W/OXYCODONE [Concomitant]
     Active Substance: ACETAMINOPHEN\OXYCODONE HYDROCHLORIDE
     Indication: NEURALGIA
     Dosage: UNK
     Route: 048
  12. MORPHINE (UNKNOWN) [Suspect]
     Active Substance: MORPHINE
     Dosage: 20 MG, Q4H
     Route: 048
  13. MORPHINE (UNKNOWN) [Suspect]
     Active Substance: MORPHINE
     Dosage: 40 MG, UNKNOWN
     Route: 048
  14. TRAMADOL. [Concomitant]
     Active Substance: TRAMADOL
     Indication: NEURALGIA
     Dosage: 100 MG, BID
     Route: 048
  15. MORPHINE (UNKNOWN) [Suspect]
     Active Substance: MORPHINE
     Indication: BREAKTHROUGH PAIN
     Dosage: 10 MG, Q4H
     Route: 033
  16. FAMOTIDINE. [Suspect]
     Active Substance: FAMOTIDINE
     Indication: PRODUCT USED FOR UNKNOWN INDICATION
     Dosage: UNK
     Route: 048

REACTIONS (2)
  - Hepatic function abnormal [Recovering/Resolving]
  - Hyperaesthesia [Recovered/Resolved]
